FAERS Safety Report 18413217 (Version 1)
Quarter: 2020Q4

REPORT INFORMATION
  Report Type: Spontaneous
  Country: US (occurrence: US)
  Receive Date: 20201021
  Receipt Date: 20201021
  Transmission Date: 20210114
  Serious: Yes (Hospitalization)
  Sender: FDA-Public Use
  Company Number: US-GILEAD-2020-0500320

PATIENT
  Age: 52 Year
  Sex: Female
  Weight: 52 kg

DRUGS (10)
  1. DEXAMETHASONE. [Concomitant]
     Active Substance: DEXAMETHASONE
  2. ASCORBIC ACID. [Concomitant]
     Active Substance: ASCORBIC ACID
  3. ENOXAPARIN [Concomitant]
     Active Substance: ENOXAPARIN
  4. PANTOPRAZOLE [Concomitant]
     Active Substance: PANTOPRAZOLE
  5. ZINC. [Concomitant]
     Active Substance: ZINC
  6. CEFTRIAXONE. [Concomitant]
     Active Substance: CEFTRIAXONE
  7. SUCRALFATE. [Concomitant]
     Active Substance: SUCRALFATE
  8. CHOLECALCIFEROL [Concomitant]
     Active Substance: CHOLECALCIFEROL
  9. DOXYCYCLINE. [Concomitant]
     Active Substance: DOXYCYCLINE
  10. REMDESIVIR. [Suspect]
     Active Substance: REMDESIVIR
     Indication: COVID-19
     Dosage: 200 MG, ONCE
     Route: 041
     Dates: start: 20201014, end: 20201016

REACTIONS (2)
  - Nausea [Not Recovered/Not Resolved]
  - Vomiting [Not Recovered/Not Resolved]

NARRATIVE: CASE EVENT DATE: 20201014
